FAERS Safety Report 7568075-9 (Version None)
Quarter: 2011Q2

REPORT INFORMATION
  Report Type: 
  Country: None (occurrence: None)
  Receive Date: 20110623
  Receipt Date: 20110617
  Transmission Date: 20111010
  Serious: Yes (Death)
  Sender: FDA-Public Use
  Company Number: TN-SANOFI-AVENTIS-2011SA038304

PATIENT
  Age: 69 Year
  Sex: Male

DRUGS (11)
  1. PLAVIX [Suspect]
     Route: 048
     Dates: start: 20110124, end: 20110304
  2. INSULATARD [Concomitant]
     Route: 058
     Dates: end: 20110504
  3. PLAVIX [Suspect]
     Indication: ACUTE CORONARY SYNDROME
     Route: 048
     Dates: start: 20110124, end: 20110304
  4. OMEPRAZOLE [Concomitant]
     Route: 048
     Dates: end: 20110504
  5. CAPTOPRIL [Concomitant]
     Route: 048
     Dates: end: 20110504
  6. FOLIC ACID [Concomitant]
     Route: 048
     Dates: end: 20110504
  7. ROSUVASTATIN CALCIUM [Concomitant]
     Route: 058
     Dates: end: 20110504
  8. LASIX [Concomitant]
     Route: 048
     Dates: end: 20110504
  9. LEXOMIL [Concomitant]
     Route: 048
     Dates: end: 20110504
  10. CALPEROS [Concomitant]
     Route: 048
     Dates: end: 20110504
  11. ASPEGIC 325 [Concomitant]
     Route: 048
     Dates: end: 20110504

REACTIONS (1)
  - ARRHYTHMIA [None]
